FAERS Safety Report 15761626 (Version 1)
Quarter: 2018Q4

REPORT INFORMATION
  Report Type: Spontaneous
  Country: IT (occurrence: IT)
  Receive Date: 20181226
  Receipt Date: 20181226
  Transmission Date: 20190205
  Serious: Yes (Other)
  Sender: FDA-Public Use
  Company Number: IT-GLAXOSMITHKLINE-IT2018231983

PATIENT
  Age: 52 Year
  Sex: Female

DRUGS (5)
  1. VOLTAREN [Suspect]
     Active Substance: DICLOFENAC SODIUM
     Indication: SCIATICA
     Dosage: 12 MG, UNK
     Route: 030
  2. TORA-DOL [Suspect]
     Active Substance: KETOROLAC TROMETHAMINE
     Indication: SCIATICA
     Dosage: 6 MG, UNK
     Route: 030
  3. OKI [Suspect]
     Active Substance: KETOPROFEN LYSINE
     Indication: SCIATICA
     Dosage: 1 MG, TOTAL
     Route: 048
     Dates: start: 20181004, end: 20181004
  4. BENTELAN [Suspect]
     Active Substance: BETAMETHASONE SODIUM PHOSPHATE
     Indication: SCIATICA
     Dosage: 6 MG, UNK
     Route: 030
  5. MUSCORIL [Suspect]
     Active Substance: THIOCOLCHICOSIDE
     Indication: SCIATICA
     Dosage: 6 MG, UNK
     Route: 030

REACTIONS (3)
  - Melaena [Unknown]
  - Haematemesis [Unknown]
  - Duodenal ulcer [Unknown]

NARRATIVE: CASE EVENT DATE: 20181005
